FAERS Safety Report 5934130-X (Version None)
Quarter: 2008Q4

REPORT INFORMATION
  Report Type: 
  Country: None (occurrence: None)
  Receive Date: 20081029
  Receipt Date: 20081023
  Transmission Date: 20090506
  Serious: Yes (Other)
  Sender: FDA-Public Use
  Company Number: A0744136A

PATIENT
  Age: 25 Year
  Sex: Male

DRUGS (5)
  1. LAMICTAL [Suspect]
     Indication: CONVULSION
     Dosage: 275MG TWICE PER DAY
     Route: 048
     Dates: start: 20050101
  2. VIACTIV [Suspect]
     Indication: VITAMIN D DECREASED
     Route: 048
     Dates: start: 20080301
  3. GLYCOLAX [Concomitant]
  4. BENEFIBER [Concomitant]
  5. ZEGERID [Concomitant]

REACTIONS (7)
  - COMPLEX PARTIAL SEIZURES [None]
  - DRUG INTERACTION [None]
  - FATIGUE [None]
  - HYPERHIDROSIS [None]
  - LOSS OF CONSCIOUSNESS [None]
  - PETIT MAL EPILEPSY [None]
  - STARING [None]
